FAERS Safety Report 7402053-5 (Version None)
Quarter: 2011Q2

REPORT INFORMATION
  Report Type: 
  Country: None (occurrence: None)
  Receive Date: 20110408
  Receipt Date: 20110214
  Transmission Date: 20111010
  Serious: Yes (Hospitalization, Other)
  Sender: FDA-Public Use
  Company Number: US-BAYER-201038918NA

PATIENT
  Age: 25 Year
  Sex: Female
  Weight: 67.12 kg

DRUGS (4)
  1. UNCODEABLE ^UNCLASSIFIABLE^ [Concomitant]
     Dosage: UNK
     Dates: start: 20041101
  2. YASMIN [Suspect]
     Indication: CONTRACEPTION
     Dosage: UNK UNK, QD
     Route: 048
     Dates: start: 20050330, end: 20060227
  3. ORTHO TRI-CYCLEN [Concomitant]
  4. CLAFORAN [Concomitant]

REACTIONS (3)
  - CHOLECYSTITIS CHRONIC [None]
  - HYDROCHOLECYSTIS [None]
  - CHOLECYSTECTOMY [None]
